FAERS Safety Report 9240458 (Version 1)
Quarter: 2013Q2

REPORT INFORMATION
  Report Type: Spontaneous
  Country: US (occurrence: US)
  Receive Date: 20130418
  Receipt Date: 20130418
  Transmission Date: 20140414
  Serious: Yes (Death, Hospitalization, Other)
  Sender: FDA-Public Use
  Company Number: US-BMSGILMSD-2012-0061498

PATIENT
  Age: 34 Year
  Sex: Male

DRUGS (4)
  1. ATRIPLA [Suspect]
     Indication: HIV INFECTION
     Dosage: 1 DF, UNK
  2. ISENTRESS [Suspect]
     Indication: HIV INFECTION
     Dosage: 400 MG, BID
     Route: 048
     Dates: start: 201106
  3. EMPIRIN [Concomitant]
  4. MEPRON                             /00049601/ [Concomitant]

REACTIONS (9)
  - Death [Fatal]
  - Kaposi^s sarcoma [Unknown]
  - Pneumonia [Unknown]
  - Respiratory disorder [Unknown]
  - Wheezing [Unknown]
  - Cough [Unknown]
  - Haemoptysis [Unknown]
  - Treatment noncompliance [Unknown]
  - Dyspnoea [Unknown]
